FAERS Safety Report 5145697-6 (Version None)
Quarter: 2006Q4

REPORT INFORMATION
  Report Type: 
  Country: None (occurrence: None)
  Receive Date: 20060906
  Receipt Date: 20060607
  Transmission Date: 20070319
  Serious: Yes (Other)
  Sender: FDA-Public Use
  Company Number: WAES 0606USA01490

PATIENT
  Sex: Female

DRUGS (1)
  1. MAXALT [Suspect]
     Dosage: 10 MG/PRN/PO
     Route: 048

REACTIONS (1)
  - CHEST PAIN [None]
